FAERS Safety Report 18584633 (Version 1)
Quarter: 2020Q4

REPORT INFORMATION
  Report Type: Spontaneous
  Country: RO (occurrence: RO)
  Receive Date: 20201207
  Receipt Date: 20201207
  Transmission Date: 20210114
  Serious: Yes (Other)
  Sender: FDA-Public Use
  Company Number: RO-TEVA-2020-RO-1856089

PATIENT
  Age: 50 Year
  Sex: Female

DRUGS (3)
  1. TEMOZOLOMIDE. [Suspect]
     Active Substance: TEMOZOLOMIDE
     Indication: SOMATOSTATINOMA
     Dosage: 200 MG/M2 DAILY; CAPTEM CHEMOTHERAPY REGIMEN RECEIVED ON DAYS 10-14 EVERY 28 DAYS
     Route: 065
  2. LANREOTIDE AUTOGEL [Suspect]
     Active Substance: LANREOTIDE
     Indication: SOMATOSTATINOMA
     Route: 065
  3. CAPECITABINE. [Suspect]
     Active Substance: CAPECITABINE
     Indication: SOMATOSTATINOMA
     Dosage: 1500 MG/M2 DAILY; CAPTEM CHEMOTHERAPY REGIMEN RECEIVED ON DAYS 1-14
     Route: 065

REACTIONS (2)
  - Palmar-plantar erythrodysaesthesia syndrome [Unknown]
  - Thrombocytopenia [Unknown]
